FAERS Safety Report 6888186-0 (Version None)
Quarter: 2010Q3

REPORT INFORMATION
  Report Type: 
  Country: None (occurrence: None)
  Receive Date: 20100726
  Receipt Date: 20100712
  Transmission Date: 20110219
  Serious: Yes (Other)
  Sender: FDA-Public Use
  Company Number: 1000014898

PATIENT
  Age: 57 Year
  Sex: Female

DRUGS (9)
  1. ESCITALOPRAM [Suspect]
     Indication: STRESS
     Dosage: 5 MG (5 MG, 1 IN 1 D), ORAL
     Route: 048
     Dates: start: 20091203, end: 20091211
  2. ESCITALOPRAM [Suspect]
     Indication: STRESS
     Dosage: 10 MG (10 MG, 1 IN 1 D), ORAL
     Route: 048
     Dates: start: 20091212, end: 20091218
  3. ESCITALOPRAM [Suspect]
     Indication: STRESS
     Dosage: 5 MG (5 MG, 1 IN 1 D), ORAL
     Route: 048
     Dates: start: 20091220
  4. ZOLODROM [Concomitant]
  5. SINGULAIR [Concomitant]
  6. ASPIRIN [Concomitant]
  7. ATORVASTATIN [Concomitant]
  8. REMERON [Concomitant]
  9. ELTROXIN [Concomitant]

REACTIONS (5)
  - ANXIETY [None]
  - DIZZINESS [None]
  - PALPITATIONS [None]
  - SLEEP DISORDER [None]
  - TREMOR [None]
